FAERS Safety Report 24687122 (Version 2)
Quarter: 2025Q3

REPORT INFORMATION
  Report Type: Spontaneous
  Country: EU (occurrence: EU)
  Receive Date: 20241202
  Receipt Date: 20250728
  Transmission Date: 20251021
  Serious: Yes (Hospitalization)
  Sender: FRESENIUS KABI
  Company Number: None

PATIENT
  Age: 73 Year
  Sex: Male
  Weight: 91.4 kg

DRUGS (16)
  1. PIPERACILLIN AND TAZOBACTAM [Suspect]
     Active Substance: PIPERACILLIN SODIUM\TAZOBACTAM SODIUM
     Indication: Sepsis
     Route: 042
     Dates: start: 20241027, end: 20241103
  2. IRBESARTAN ARROW 150 mg, tablet [IRBESARTAN] [Concomitant]
     Indication: Product used for unknown indication
  3. ATORVASTATINE EG LABO 10 mg, coated tablet [atorvastatin calcium trihy [Concomitant]
     Indication: Product used for unknown indication
  4. KARDEGIC 75 mg, powder for oral solution in sachet [Concomitant]
     Indication: Product used for unknown indication
  5. METFORMIN ARROW LAB 500 mg, film-coated tablet [Concomitant]
     Indication: Product used for unknown indication
  6. ZOPICLONE ARROW LAB 7.5 mg, coated tablet [ZOPICLONE] [Concomitant]
     Indication: Product used for unknown indication
  7. ACEBUTOLOL ARROW LAB 200 mg, scored film-coated tablet [Concomitant]
     Indication: Product used for unknown indication
  8. DOLIPRANE [Concomitant]
     Active Substance: ACETAMINOPHEN
     Indication: Product used for unknown indication
  9. NEFOPAM VIATRIS 20 mg/2 ml injectable solution [Concomitant]
     Indication: Product used for unknown indication
  10. ALFUZOSINE EG L.P. 10 mg, sustained-release tablet [Concomitant]
     Indication: Product used for unknown indication
  11. ACTISKENAN 10 mg, capsule [MORPHINE SULFATE] [Concomitant]
     Indication: Product used for unknown indication
  12. PRINC B [PYRIDOXINE HYDROCHLORIDE, THIAMINE NITRATE]. [Concomitant]
     Indication: Product used for unknown indication
  13. DIAZEPAM ARROW 10 mg, scored tablet [DIAZEPAM] [Concomitant]
     Indication: Product used for unknown indication
  14. DUPHALAC [Concomitant]
     Active Substance: LACTULOSE
     Indication: Product used for unknown indication
  15. HUMALOG [INSULIN LISPRO, INSULIN LISPRO RECOMBINANT ((BACTERIA/ESCHERI [Concomitant]
     Indication: Product used for unknown indication
  16. LOVENOX [ENOXAPARIN SODIUM ((MAMMAL/PIG/INTESTINAL MUCOSA)] [Concomitant]
     Indication: Product used for unknown indication

REACTIONS (2)
  - Hepatic cytolysis [Recovered/Resolved]
  - Cholestasis [Recovering/Resolving]

NARRATIVE: CASE EVENT DATE: 20241028
